FAERS Safety Report 4894407-6 (Version None)
Quarter: 2006Q1

REPORT INFORMATION
  Report Type: 
  Country: None (occurrence: None)
  Receive Date: 20060127
  Receipt Date: 20060123
  Transmission Date: 20060701
  Serious: Yes (Hospitalization)
  Sender: FDA-Public Use
  Company Number: PHBS2006ES01218

PATIENT
  Age: 63 Year
  Sex: Male

DRUGS (4)
  1. DIOVAN HCT [Suspect]
     Indication: HYPERTENSION
     Dosage: VALS 80 MG/ HCT 12.5 MG/DAY
     Route: 048
     Dates: start: 20050301
  2. NORVASC [Suspect]
     Indication: HYPERTENSION
     Dosage: 5 MG/DAY
     Route: 048
     Dates: start: 20050301
  3. CAPTOPRIL [Suspect]
     Indication: HYPERTENSION
     Dosage: 25 MG/DAY
  4. ORFIDAL [Concomitant]

REACTIONS (1)
  - HYPOGEUSIA [None]
